FAERS Safety Report 15464525 (Version 1)
Quarter: 2018Q4

REPORT INFORMATION
  Report Type: Spontaneous
  Country: FR (occurrence: FR)
  Receive Date: 20181004
  Receipt Date: 20181004
  Transmission Date: 20190204
  Serious: Yes (Hospitalization)
  Sender: FDA-Public Use
  Company Number: FR-MYLANLABS-2018M1073053

PATIENT
  Age: 78 Year
  Sex: Male
  Weight: 54 kg

DRUGS (2)
  1. VALACICLOVIR [Suspect]
     Active Substance: VALACYCLOVIR HYDROCHLORIDE
     Indication: PROPHYLAXIS
     Dosage: 1000 MG, QD
     Route: 048
     Dates: start: 20150510, end: 20180104
  2. PROZAC [Suspect]
     Active Substance: FLUOXETINE HYDROCHLORIDE
     Indication: DEPRESSION
     Dosage: 1 DF, QD
     Route: 048
     Dates: start: 20171221, end: 20180104

REACTIONS (3)
  - Jaundice [Recovered/Resolved]
  - Hepatocellular injury [Recovered/Resolved]
  - Cholestasis [Recovered/Resolved]

NARRATIVE: CASE EVENT DATE: 20171224
